FAERS Safety Report 11371298 (Version 1)
Quarter: 2015Q3

REPORT INFORMATION
  Report Type: Report from Study
  Country: AR (occurrence: AR)
  Receive Date: 20150812
  Receipt Date: 20150812
  Transmission Date: 20151125
  Serious: Yes (Hospitalization)
  Sender: FDA-Public Use
  Company Number: PHHY2015AR095727

PATIENT
  Sex: Female

DRUGS (3)
  1. TRILEPTAL [Suspect]
     Active Substance: OXCARBAZEPINE
     Indication: HEADACHE
     Dosage: 300 OT, BID
     Route: 065
  2. TRILEPTAL [Suspect]
     Active Substance: OXCARBAZEPINE
     Dosage: 300 OT, BID
     Route: 065
  3. TRILEPTAL [Suspect]
     Active Substance: OXCARBAZEPINE
     Dosage: 300 OT, QID
     Route: 065

REACTIONS (4)
  - Drug ineffective for unapproved indication [Unknown]
  - Pain [Unknown]
  - Product use issue [Unknown]
  - Feeling abnormal [Unknown]
